FAERS Safety Report 8473055 (Version 3)
Quarter: 2012Q4

REPORT INFORMATION
  Report Type: 
  Country: DE (occurrence: DE)
  Receive Date: 20120322
  Receipt Date: 20121023
  Transmission Date: 20130627
  Serious: Yes (Other)
  Sender: FDA-Public Use
  Company Number: PHHO2012DE004646

PATIENT
  Age: 41 Year
  Sex: Female
  Weight: 61 kg

DRUGS (2)
  1. FTY [Suspect]
     Indication: MULTIPLE SCLEROSIS
     Dosage: 0.5 mg, QD
     Route: 048
     Dates: start: 20110309
  2. MIRENA [Concomitant]
     Indication: CONTRACEPTION
     Dosage: UNK
     Dates: start: 20100113

REACTIONS (1)
  - Basal cell carcinoma [Recovered/Resolved]
